FAERS Safety Report 21789572 (Version 1)
Quarter: 2022Q4

REPORT INFORMATION
  Report Type: Spontaneous
  Country: CN (occurrence: CN)
  Receive Date: 20221228
  Receipt Date: 20221228
  Transmission Date: 20230113
  Serious: No
  Sender: FDA-Public Use
  Company Number: CN-PFIZER INC-PV202200131204

PATIENT
  Age: 94 Year
  Sex: Female

DRUGS (2)
  1. PAXLOVID [Suspect]
     Active Substance: NIRMATRELVIR\RITONAVIR
     Indication: COVID-19 treatment
     Dosage: UNK
     Route: 048
     Dates: start: 20221223
  2. ESTAZOLAM [Suspect]
     Active Substance: ESTAZOLAM
     Dosage: UNK
     Route: 048
     Dates: start: 20221223

REACTIONS (1)
  - Contraindicated product administered [Unknown]
